FAERS Safety Report 6544520 (Version 4)
Quarter: 2017Q2

REPORT INFORMATION
  Report Type: Spontaneous
  Country: US (occurrence: US)
  Receive Date: 20080206
  Receipt Date: 20170420
  Transmission Date: 20170830
  Serious: Yes (Hospitalization, Other)
  Sender: FDA-Public Use
  Company Number: US-ROCHE-533398

PATIENT
  Age: 18 Year
  Sex: Female
  Weight: 59 kg

DRUGS (2)
  1. ACCUTANE [Suspect]
     Active Substance: ISOTRETINOIN
     Route: 065
     Dates: start: 19940110, end: 199403
  2. ACCUTANE [Suspect]
     Active Substance: ISOTRETINOIN
     Indication: ACNE
     Dosage: PHYSICIAN MADE NOTE IN JANUARY 1994, THAT PATIENT ENDED PREVIOUS THERAPY AT 50MG PER DAY.
     Route: 065
     Dates: start: 199305, end: 199310

REACTIONS (10)
  - Anxiety [Unknown]
  - Rheumatoid arthritis [Recovering/Resolving]
  - Anaemia [Unknown]
  - Pouchitis [Unknown]
  - Depression [Unknown]
  - Joint stiffness [Unknown]
  - Colitis ulcerative [Unknown]
  - Inflammatory bowel disease [Unknown]
  - Acne [Unknown]
  - Ovarian cyst [Unknown]

NARRATIVE: CASE EVENT DATE: 19930614
